FAERS Safety Report 15869422 (Version 1)
Quarter: 2019Q1

REPORT INFORMATION
  Report Type: Report from Study
  Country: BR (occurrence: BR)
  Receive Date: 20190125
  Receipt Date: 20190125
  Transmission Date: 20190417
  Serious: Yes (Other)
  Sender: FDA-Public Use
  Company Number: PHHY2017BR158856

PATIENT
  Age: 42 Year
  Sex: Female
  Weight: 72 kg

DRUGS (13)
  1. XOLAIR [Interacting]
     Active Substance: OMALIZUMAB
     Dosage: UNK
     Route: 058
     Dates: start: 20170518, end: 20170518
  2. CARVEDILOL. [Interacting]
     Active Substance: CARVEDILOL
     Dosage: 4 DF (50 MG), QD
     Route: 048
  3. LOSARTAN. [Concomitant]
     Active Substance: LOSARTAN
     Indication: HYPERTENSION
     Dosage: 1 DF, QD
     Route: 048
     Dates: start: 201610
  4. XOLAIR [Interacting]
     Active Substance: OMALIZUMAB
     Dosage: 300 MG, QMO
     Route: 058
     Dates: start: 20170209
  5. LORATADINE. [Concomitant]
     Active Substance: LORATADINE
     Indication: URTICARIA
     Dosage: 4 DF, QD SINCE 6 MONGHS AGO
     Route: 048
  6. LORATADINE. [Concomitant]
     Active Substance: LORATADINE
     Indication: CHRONIC SPONTANEOUS URTICARIA
     Dosage: 2 DF, BID (TABLETS)
     Route: 048
     Dates: start: 20161128
  7. XOLAIR [Interacting]
     Active Substance: OMALIZUMAB
     Indication: URTICARIA
     Dosage: 300 MG, QMO
     Route: 058
     Dates: start: 201609
  8. XOLAIR [Interacting]
     Active Substance: OMALIZUMAB
     Dosage: UNK
     Route: 058
     Dates: start: 201811
  9. CARVEDILOL. [Suspect]
     Active Substance: CARVEDILOL
     Indication: CARDIAC FAILURE
     Dosage: 2 DF (7 MG), QD
     Route: 048
  10. XOLAIR [Interacting]
     Active Substance: OMALIZUMAB
     Dosage: 2 DF (300 MG), UNK
     Route: 058
     Dates: start: 20170316
  11. CORTISONE [Suspect]
     Active Substance: CORTISONE\HYDROCORTISONE
     Indication: PRODUCT USED FOR UNKNOWN INDICATION
     Route: 065
  12. XOLAIR [Interacting]
     Active Substance: OMALIZUMAB
     Dosage: UNK
     Route: 058
     Dates: start: 20180219
  13. BUDESONIDE. [Concomitant]
     Active Substance: BUDESONIDE
     Indication: RHINITIS
     Dosage: (1 SPRAY IN EACH NOSTRIL TWICE A DAY)
     Route: 006
     Dates: start: 20151201, end: 20171125

REACTIONS (34)
  - Tricuspid valve incompetence [Unknown]
  - Congestive cardiomyopathy [Unknown]
  - Cardiac failure [Recovering/Resolving]
  - Scratch [Unknown]
  - Sensitivity to weather change [Unknown]
  - Weight increased [Unknown]
  - Pruritus [Recovering/Resolving]
  - Acne [Recovered/Resolved]
  - Pyrexia [Unknown]
  - Aortic valve incompetence [Unknown]
  - Mitral valve incompetence [Unknown]
  - Skin discolouration [Not Recovered/Not Resolved]
  - Eye swelling [Unknown]
  - Pain in extremity [Recovered/Resolved]
  - Alopecia [Unknown]
  - Drug ineffective [Unknown]
  - Dyspnoea at rest [Unknown]
  - Malaise [Not Recovered/Not Resolved]
  - Crying [Unknown]
  - Palpitations [Unknown]
  - Skin plaque [Recovered/Resolved]
  - Nervousness [Not Recovered/Not Resolved]
  - Urticaria [Recovered/Resolved]
  - Scab [Recovering/Resolving]
  - Orthopnoea [Recovering/Resolving]
  - Mitral valve calcification [Unknown]
  - Blister [Unknown]
  - Fatigue [Unknown]
  - Pulmonary hypertension [Unknown]
  - Dyspnoea exertional [Recovering/Resolving]
  - Right ventricular hypertrophy [Unknown]
  - Ejection fraction decreased [Unknown]
  - Ventricular hypokinesia [Unknown]
  - Oropharyngeal spasm [Not Recovered/Not Resolved]

NARRATIVE: CASE EVENT DATE: 201704
